FAERS Safety Report 13892447 (Version 1)
Quarter: 2017Q3

REPORT INFORMATION
  Report Type: Spontaneous
  Country: US (occurrence: US)
  Receive Date: 20170822
  Receipt Date: 20170822
  Transmission Date: 20171127
  Serious: No
  Sender: FDA-Public Use
  Company Number: US-ENDO PHARMACEUTICALS INC-2017-001628

PATIENT
  Age: 64 Year
  Sex: Male
  Weight: 99.77 kg

DRUGS (9)
  1. TESTOPEL [Suspect]
     Active Substance: TESTOSTERONE
     Indication: HYPOGONADISM
     Dosage: 900 MG, 12 PELLETS
     Route: 058
     Dates: start: 20160725
  2. STENDRA [Concomitant]
     Active Substance: AVANAFIL
     Indication: ERECTILE DYSFUNCTION
  3. NEXIUM [Concomitant]
     Active Substance: ESOMEPRAZOLE MAGNESIUM
     Indication: GASTROOESOPHAGEAL REFLUX DISEASE
  4. VIAGRA [Concomitant]
     Active Substance: SILDENAFIL CITRATE
     Indication: ERECTILE DYSFUNCTION
  5. CELEBREX [Suspect]
     Active Substance: CELECOXIB
     Indication: PAIN
  6. TESTOPEL [Suspect]
     Active Substance: TESTOSTERONE
     Dosage: 12 PELLETS EVERY 4-6 MONTHS
     Route: 058
     Dates: start: 20160304
  7. TESTOPEL [Suspect]
     Active Substance: TESTOSTERONE
     Dosage: 900 MG, 12 PELLETS
     Route: 058
     Dates: start: 20161209
  8. CIALIS [Concomitant]
     Active Substance: TADALAFIL
     Indication: ERECTILE DYSFUNCTION
  9. TESTOPEL [Suspect]
     Active Substance: TESTOSTERONE
     Indication: BLOOD TESTOSTERONE DECREASED
     Dosage: 750 MG, 10 PELLETS
     Route: 058
     Dates: start: 20160304

REACTIONS (5)
  - Drug effect decreased [Unknown]
  - Unevaluable event [Unknown]
  - Drug ineffective [Recovered/Resolved]
  - Implant site pain [Unknown]
  - Prescribed overdose [Unknown]

NARRATIVE: CASE EVENT DATE: 201603
